FAERS Safety Report 4357627-5 (Version None)
Quarter: 2004Q2

REPORT INFORMATION
  Report Type: 
  Country: None (occurrence: None)
  Receive Date: 20040510
  Receipt Date: 20040426
  Transmission Date: 20050107
  Serious: Yes (Hospitalization, Other)
  Sender: FDA-Public Use
  Company Number: 2004-01782

PATIENT
  Age: 29 Year
  Sex: Female
  Weight: 41.7 kg

DRUGS (9)
  1. FERRLECIT [Suspect]
     Indication: IRON DEFICIENCY ANAEMIA
     Dosage: 125 MG IVPB OVER 1 HR X 1, INTRAVENOUS
     Route: 042
     Dates: start: 20040415, end: 20040415
  2. NEURONTIN [Concomitant]
  3. DILANTIN [Concomitant]
  4. ADDERALL (DEXAMFETAMINE SULFATE, AMFETAMINE SULFATE, DEXAMFETAMINE SAC [Concomitant]
  5. FLORINEF (FLUTICORTISONE ACETATE) [Concomitant]
  6. VITAMIN B6 [Concomitant]
  7. SODIUM CHLORIDE COMPOUND INJETION (SODIUM CHLORIDE COMPOUND INJECTION) [Concomitant]
  8. K-DUR 10 [Concomitant]
  9. SYNTHROID [Concomitant]

REACTIONS (15)
  - ABDOMINAL PAIN LOWER [None]
  - APHAGIA [None]
  - AUTONOMIC NERVOUS SYSTEM IMBALANCE [None]
  - BACK PAIN [None]
  - FAECAL INCONTINENCE [None]
  - HEART RATE DECREASED [None]
  - HYPOGLYCAEMIA [None]
  - HYPOTENSION [None]
  - HYPOTHERMIA [None]
  - LOSS OF CONSCIOUSNESS [None]
  - MUSCLE SPASMS [None]
  - PULSE ABSENT [None]
  - RASH [None]
  - SYNCOPE VASOVAGAL [None]
  - URINARY INCONTINENCE [None]
